FAERS Safety Report 8485751-4 (Version None)
Quarter: 2012Q3

REPORT INFORMATION
  Report Type: 
  Country: None (occurrence: None)
  Receive Date: 20120703
  Receipt Date: 20120621
  Transmission Date: 20120928
  Serious: No
  Sender: FDA-Public Use
  Company Number: US-ASTRAZENECA-2012SE01548

PATIENT
  Age: 47 Year
  Sex: Female

DRUGS (3)
  1. PROTONIX [Concomitant]
  2. NEXIUM [Suspect]
     Indication: GASTROOESOPHAGEAL REFLUX DISEASE
     Route: 048
  3. PRILOSEC [Suspect]
     Route: 048

REACTIONS (5)
  - WEIGHT INCREASED [None]
  - DRUG DOSE OMISSION [None]
  - APHAGIA [None]
  - WEIGHT DECREASED [None]
  - DRUG INEFFECTIVE [None]
